FAERS Safety Report 4891856-7 (Version None)
Quarter: 2006Q1

REPORT INFORMATION
  Report Type: 
  Country: None (occurrence: None)
  Receive Date: 20060124
  Receipt Date: 20060124
  Transmission Date: 20060701
  Serious: Yes (Other)
  Sender: FDA-Public Use
  Company Number: None

PATIENT
  Age: 64 Year
  Sex: Female
  Weight: 63 kg

DRUGS (1)
  1. BACITRACIN [Suspect]
     Indication: SKIN INFECTION
     Dosage: TID TOPICAL
     Route: 061
     Dates: start: 20041230, end: 20050107

REACTIONS (1)
  - DERMATITIS CONTACT [None]
